FAERS Safety Report 19662026 (Version 2)
Quarter: 2021Q3

REPORT INFORMATION
  Report Type: Spontaneous
  Country: US (occurrence: US)
  Receive Date: 20210805
  Receipt Date: 20210826
  Transmission Date: 20211014
  Serious: No
  Sender: FDA-Public Use
  Company Number: US-TAKEDA-2021TUS046846

PATIENT
  Sex: Female
  Weight: 112 kg

DRUGS (1)
  1. VELCADE [Suspect]
     Active Substance: BORTEZOMIB
     Indication: PLASMA CELL MYELOMA
     Dosage: UNK UNK, 1/WEEK
     Route: 058

REACTIONS (8)
  - Pain [Unknown]
  - Weight decreased [Unknown]
  - Injection site reaction [Unknown]
  - Erythema [Unknown]
  - Application site reaction [Unknown]
  - Contusion [Unknown]
  - Pruritus [Unknown]
  - Blister [Unknown]
